FAERS Safety Report 7029075-0 (Version None)
Quarter: 2010Q4

REPORT INFORMATION
  Report Type: 
  Country: None (occurrence: None)
  Receive Date: 20101005
  Receipt Date: 20100928
  Transmission Date: 20110411
  Serious: Yes (Hospitalization)
  Sender: FDA-Public Use
  Company Number: B0673064A

PATIENT
  Sex: Female
  Weight: 48 kg

DRUGS (10)
  1. TYKERB [Suspect]
     Indication: BREAST CANCER
     Dosage: 1250MG PER DAY
     Route: 048
     Dates: start: 20091216, end: 20100120
  2. STEROID [Suspect]
     Indication: PRODUCT USED FOR UNKNOWN INDICATION
  3. XELODA [Concomitant]
     Dosage: 3000MG PER DAY
     Route: 048
     Dates: start: 20091216, end: 20100121
  4. PURSENNID [Concomitant]
     Indication: CONSTIPATION
     Route: 048
  5. OMEPRAL [Concomitant]
     Indication: GASTRIC ULCER
     Route: 048
  6. BISACODYL [Concomitant]
     Indication: CONSTIPATION
     Route: 054
  7. RINDERON [Concomitant]
     Indication: NAUSEA
     Route: 048
  8. MAGLAX [Concomitant]
     Indication: CONSTIPATION
     Route: 048
  9. HERCEPTIN [Concomitant]
     Dates: start: 20090416, end: 20091022
  10. TAXOL [Concomitant]
     Dates: start: 20080715, end: 20090122

REACTIONS (12)
  - ALANINE AMINOTRANSFERASE INCREASED [None]
  - ASPARTATE AMINOTRANSFERASE INCREASED [None]
  - ATYPICAL MYCOBACTERIAL INFECTION [None]
  - C-REACTIVE PROTEIN INCREASED [None]
  - COUGH [None]
  - DYSPNOEA [None]
  - HEPATIC FUNCTION ABNORMAL [None]
  - HYPOXIA [None]
  - JAUNDICE [None]
  - MALAISE [None]
  - PRODUCTIVE COUGH [None]
  - PYREXIA [None]
